FAERS Safety Report 18158038 (Version 1)
Quarter: 2020Q3

REPORT INFORMATION
  Report Type: Spontaneous
  Country: US (occurrence: US)
  Receive Date: 20200817
  Receipt Date: 20200817
  Transmission Date: 20201103
  Serious: No
  Sender: FDA-Public Use
  Company Number: US-MEDEXUS PHARMA, INC.-2020MED00030

PATIENT
  Age: 96 Year
  Sex: Female
  Weight: 54.42 kg

DRUGS (8)
  1. INJECTABLE MEDICATION FOR OSTEOPOROSIS (AMGEN) [Concomitant]
     Dosage: UNK
     Dates: start: 201909
  2. ORAL MEDICATION FOR OSTEOPOROSIS [Concomitant]
     Dosage: UNK
     Dates: end: 201909
  3. PLAQUENIL [Concomitant]
     Active Substance: HYDROXYCHLOROQUINE SULFATE
     Dosage: 100 MG, 1X/DAY
  4. PREDNISONE. [Concomitant]
     Active Substance: PREDNISONE
     Dosage: 5 MG, 1X/DAY
  5. OLMESARTAN [Concomitant]
     Active Substance: OLMESARTAN
     Dosage: 50 MG, 1X/DAY
  6. MULTIPLE VITAMIN [Concomitant]
     Active Substance: VITAMINS
  7. NORVASC [Concomitant]
     Active Substance: AMLODIPINE BESYLATE
     Dosage: 5 MG, 1X/DAY
  8. RASUVO [Suspect]
     Active Substance: METHOTREXATE SODIUM
     Indication: RHEUMATOID ARTHRITIS
     Dosage: 15 MG, 1X/WEEK ON WEDNESDAYS
     Route: 058
     Dates: start: 2018

REACTIONS (3)
  - Injection site haemorrhage [Recovered/Resolved]
  - Ecchymosis [Recovering/Resolving]
  - Injection site extravasation [Recovered/Resolved]

NARRATIVE: CASE EVENT DATE: 20200129
